FAERS Safety Report 8169826-5 (Version None)
Quarter: 2012Q1

REPORT INFORMATION
  Report Type: 
  Country: None (occurrence: None)
  Receive Date: 20120222
  Receipt Date: 20120214
  Transmission Date: 20120608
  Serious: Yes (Congenital Anomaly, Other)
  Sender: FDA-Public Use
  Company Number: AUR-APL-2012-00968

PATIENT
  Sex: Female

DRUGS (5)
  1. DULOXETINE HYDROCHLORIDE [Concomitant]
  2. MORPHINE SULFATE [Concomitant]
  3. GABAPENTIN [Suspect]
     Indication: PRODUCT USED FOR UNKNOWN INDICATION
     Dosage: 3600 MG (1200 MG, 3 IN 1 D), TRANSPLACENTAL
     Route: 064
     Dates: end: 20110314
  4. TOPIRAMATE [Concomitant]
  5. METOCLOPRAMIDE [Concomitant]

REACTIONS (4)
  - FOETAL MONITORING ABNORMAL [None]
  - MATERNAL DRUGS AFFECTING FOETUS [None]
  - CAESAREAN SECTION [None]
  - HAEMANGIOMA OF SKIN [None]
